FAERS Safety Report 8793764 (Version 2)
Quarter: 2012Q4

REPORT INFORMATION
  Report Type: Report from Study
  Country: CI (occurrence: CI)
  Receive Date: 20120917
  Receipt Date: 20121011
  Transmission Date: 20130627
  Serious: Yes (Other)
  Sender: FDA-Public Use
  Company Number: CI-GILEAD-2012-0061072

PATIENT
  Age: 43 Year
  Sex: Female

DRUGS (5)
  1. EMTRICITABINE/TENOFOVIR DISOPROXIL FUMARATE [Suspect]
     Indication: HIV INFECTION
     Dosage: 1 DF, QD
     Route: 048
     Dates: start: 20020526
  2. EFAVIRENZ [Concomitant]
     Indication: HIV INFECTION
     Dosage: 600 mg, QD
     Route: 048
     Dates: start: 20020526, end: 20120227
  3. LOPINAVIR [Concomitant]
     Indication: HIV INFECTION
     Dosage: 200 mg, BID
     Route: 048
     Dates: start: 20120227
  4. RITONAVIR [Concomitant]
     Indication: HIV INFECTION
     Dosage: 50 mg, BID
     Route: 048
     Dates: start: 20120227
  5. CO-TRIMOXAZOLE [Concomitant]
     Indication: OPPORTUNISTIC INFECTION PROPHYLAXIS
     Dosage: 1 DF, QD
     Route: 048
     Dates: start: 20020526, end: 20120227

REACTIONS (1)
  - Abortion spontaneous [Unknown]
